FAERS Safety Report 6972190-8 (Version None)
Quarter: 2010Q3

REPORT INFORMATION
  Report Type: 
  Country: None (occurrence: None)
  Receive Date: 20100909
  Receipt Date: 20100831
  Transmission Date: 20110219
  Serious: No
  Sender: FDA-Public Use
  Company Number: US-BIOGENIDEC-2010BI030130

PATIENT
  Sex: Female

DRUGS (2)
  1. AVONEX [Suspect]
     Indication: MULTIPLE SCLEROSIS
     Route: 030
     Dates: start: 20100825
  2. ORAJEL [Concomitant]
     Indication: TOOTH DISORDER

REACTIONS (7)
  - FATIGUE [None]
  - MUSCLE SPASTICITY [None]
  - MYALGIA [None]
  - OROPHARYNGEAL PAIN [None]
  - PRODUCTIVE COUGH [None]
  - SKIN MASS [None]
  - THROAT IRRITATION [None]
